FAERS Safety Report 8840215 (Version 1)
Quarter: 2012Q4

REPORT INFORMATION
  Report Type: 
  Country: US (occurrence: US)
  Receive Date: 20121015
  Receipt Date: 20121015
  Transmission Date: 20130627
  Serious: Yes (Other)
  Sender: FDA-Public Use
  Company Number: US-VERTEX PHARMACEUTICAL INC.-AE-2012-011878

PATIENT
  Age: 53 Year
  Sex: Female
  Weight: 83 kg

DRUGS (6)
  1. INCIVEK [Suspect]
     Indication: HEPATITIS C
     Dosage: UNK
     Route: 048
     Dates: start: 20120326, end: 20120618
  2. PEGASYS [Suspect]
     Indication: HEPATITIS C
     Dosage: UNK
     Dates: start: 20120326, end: 20120717
  3. RIBAVIRIN [Suspect]
     Indication: HEPATITIS C
     Dosage: UNK
     Dates: start: 20120326, end: 20120717
  4. CIPRO                              /00697201/ [Concomitant]
     Dosage: 300 mg, UNK
     Dates: start: 20120608
  5. BENADRYL                           /00000402/ [Concomitant]
     Dosage: UNK
     Dates: start: 20120620
  6. NEUPOGEN [Concomitant]
     Dosage: UNK
     Dates: start: 20120504

REACTIONS (1)
  - Stevens-Johnson syndrome [Recovered/Resolved]
